FAERS Safety Report 6431919-8 (Version None)
Quarter: 2009Q4

REPORT INFORMATION
  Report Type: 
  Country: None (occurrence: None)
  Receive Date: 20091109
  Receipt Date: 20091029
  Transmission Date: 20100525
  Serious: Yes (Other)
  Sender: FDA-Public Use
  Company Number: US-BIOGENIDEC-2009BI025289

PATIENT
  Age: 62 Year
  Sex: Female
  Weight: 75 kg

DRUGS (12)
  1. AVONEX [Suspect]
     Indication: MULTIPLE SCLEROSIS
     Route: 030
  2. AVONEX [Suspect]
     Route: 030
  3. REGLAN [Concomitant]
  4. RAMIPRIL [Concomitant]
  5. BUPROPION [Concomitant]
  6. LEVOTHYROXINE SODIUM [Concomitant]
  7. GEMFIBROZIL [Concomitant]
  8. HUMALOG [Concomitant]
  9. LANTUS [Concomitant]
  10. LESCOL XL [Concomitant]
  11. ACTONEL [Concomitant]
  12. OXYBUTINYN [Concomitant]

REACTIONS (5)
  - ARTHRALGIA [None]
  - BACK PAIN [None]
  - BREAST CANCER STAGE I [None]
  - HOT FLUSH [None]
  - MULTIPLE SCLEROSIS [None]
